FAERS Safety Report 17256094 (Version 1)
Quarter: 2020Q1

REPORT INFORMATION
  Report Type: Spontaneous
  Country: US (occurrence: US)
  Receive Date: 20200110
  Receipt Date: 20200110
  Transmission Date: 20200409
  Serious: Yes (Other)
  Sender: FDA-Public Use
  Company Number: NVSC2020US002979

PATIENT
  Age: 46 Year
  Sex: Female

DRUGS (3)
  1. TOPOTECAN [Suspect]
     Active Substance: TOPOTECAN HYDROCHLORIDE
     Indication: ADENOCARCINOMA OF THE CERVIX
     Dosage: UNK, CYCLIC (7 CYCLES)
     Route: 065
     Dates: start: 20141010, end: 20150302
  2. BEVACIZUMAB. [Suspect]
     Active Substance: BEVACIZUMAB
     Indication: ADENOCARCINOMA OF THE CERVIX
     Dosage: UNK, CYCLIC(7 CYCLES)
     Route: 065
     Dates: start: 20141010, end: 20150302
  3. PACLITAXEL. [Suspect]
     Active Substance: PACLITAXEL
     Indication: ADENOCARCINOMA OF THE CERVIX
     Dosage: UNK, CYCLIC (7 CYCLES)
     Route: 065
     Dates: start: 20141010, end: 20150302

REACTIONS (3)
  - Malignant neoplasm progression [Unknown]
  - Product use in unapproved indication [Unknown]
  - Adenocarcinoma of the cervix [Unknown]
